FAERS Safety Report 10386838 (Version 1)
Quarter: 2014Q3

REPORT INFORMATION
  Report Type: Report from Study
  Country: CA (occurrence: CA)
  Receive Date: 20140815
  Receipt Date: 20140815
  Transmission Date: 20150326
  Serious: Yes (Other)
  Sender: FDA-Public Use
  Company Number: CA-JNJFOC-20140810353

PATIENT
  Age: 64 Year
  Sex: Female
  Weight: 88.5 kg

DRUGS (1)
  1. REMICADE [Suspect]
     Active Substance: INFLIXIMAB
     Indication: CROHN^S DISEASE
     Route: 042
     Dates: start: 20120214

REACTIONS (3)
  - Pyoderma gangrenosum [Unknown]
  - Fall [Unknown]
  - Tooth injury [Unknown]

NARRATIVE: CASE EVENT DATE: 201407
